FAERS Safety Report 7206441-1 (Version None)
Quarter: 2010Q4

REPORT INFORMATION
  Report Type: 
  Country: None (occurrence: None)
  Receive Date: 20101221
  Receipt Date: 20101123
  Transmission Date: 20110411
  Serious: Yes (Other)
  Sender: FDA-Public Use
  Company Number: COL_03544_2010

PATIENT
  Age: 57 Year
  Sex: Female

DRUGS (6)
  1. COLGATE TOTAL ADVANCED FRESH GEL TOOTHPASTE [Suspect]
     Indication: DENTAL PLAQUE
     Dosage: 1 DF QD, [NORMAL DOSAGE ON HER TOOTHBRUSH], ORAL
     Route: 048
     Dates: start: 20100101, end: 20101123
  2. COLGATE TOTAL ADVANCED FRESH GEL TOOTHPASTE [Suspect]
     Indication: GINGIVITIS
     Dosage: 1 DF QD, [NORMAL DOSAGE ON HER TOOTHBRUSH], ORAL
     Route: 048
     Dates: start: 20100101, end: 20101123
  3. COLGATE TOTAL UNSPECIFIED TOOTHPASTE [Suspect]
     Indication: DENTAL PLAQUE
     Dosage: ORAL
     Route: 048
     Dates: start: 20100101, end: 20100101
  4. COLGATE TOTAL UNSPECIFIED TOOTHPASTE [Suspect]
     Indication: GINGIVITIS
     Dosage: ORAL
     Route: 048
     Dates: start: 20100101, end: 20100101
  5. IBUPROFEN [Suspect]
     Indication: PAIN
     Dosage: PRN, ORAL
     Route: 048
     Dates: start: 20090101
  6. OMEPRAZOLE [Concomitant]

REACTIONS (3)
  - ALLERGY TO ARTHROPOD STING [None]
  - ANAPHYLACTIC SHOCK [None]
  - TREATMENT NONCOMPLIANCE [None]
